FAERS Safety Report 8085015-7 (Version None)
Quarter: 2012Q1

REPORT INFORMATION
  Report Type: 
  Country: None (occurrence: None)
  Receive Date: 20120128
  Receipt Date: 20110313
  Transmission Date: 20120608
  Serious: No
  Sender: FDA-Public Use
  Company Number: US-ABBOTT-11P-163-0711125-00

PATIENT
  Age: 22 Year
  Sex: Female

DRUGS (3)
  1. JUNEL FE 1.5/30 [Concomitant]
     Indication: CONTRACEPTION
  2. MERCAPTOPURINE [Concomitant]
     Indication: CROHN'S DISEASE
  3. HUMIRA [Suspect]
     Indication: CROHN'S DISEASE
     Dates: start: 20110101

REACTIONS (1)
  - ACNE [None]
